FAERS Safety Report 7794605-8 (Version None)
Quarter: 2011Q4

REPORT INFORMATION
  Report Type: 
  Country: None (occurrence: None)
  Receive Date: 20111004
  Receipt Date: 20110927
  Transmission Date: 20120403
  Serious: Yes (Other)
  Sender: FDA-Public Use
  Company Number: BR-SANOFI-AVENTIS-2011SA063520

PATIENT
  Age: 66 Year
  Sex: Male
  Weight: 70 kg

DRUGS (4)
  1. GLIMEPIRIDE [Concomitant]
     Indication: TYPE 2 DIABETES MELLITUS
     Route: 048
  2. NEVANAC [Concomitant]
     Route: 047
     Dates: start: 20110801
  3. LANTUS [Suspect]
     Indication: TYPE 2 DIABETES MELLITUS
     Route: 058
  4. POLYETHYLENE GLYCOL [Concomitant]
     Route: 047
     Dates: start: 20110801

REACTIONS (3)
  - BLINDNESS [None]
  - ADVERSE REACTION [None]
  - RETINOPATHY PROLIFERATIVE [None]
